FAERS Safety Report 10501170 (Version 5)
Quarter: 2014Q4

REPORT INFORMATION
  Report Type: Spontaneous
  Country: US (occurrence: US)
  Receive Date: 20141007
  Receipt Date: 20141126
  Transmission Date: 20150528
  Serious: Yes (Other)
  Sender: FDA-Public Use
  Company Number: US-JNJFOC-20140925248

PATIENT
  Age: 50 Year
  Sex: Female
  Weight: 65.77 kg

DRUGS (4)
  1. MENS ROGAINE EXTRA STRENGTH [Suspect]
     Active Substance: MINOXIDIL
     Route: 061
  2. MENS ROGAINE EXTRA STRENGTH [Suspect]
     Active Substance: MINOXIDIL
     Indication: ALOPECIA
     Dosage: AROUND 2 ML AS DIRECTED
     Route: 061
     Dates: start: 20140914
  3. TYLENOL [Concomitant]
     Active Substance: ACETAMINOPHEN
     Indication: ANALGESIC THERAPY
     Route: 065
  4. EXCEDRIN [Concomitant]
     Active Substance: ACETAMINOPHEN\ASPIRIN\CAFFEINE
     Indication: ANALGESIC THERAPY
     Route: 065

REACTIONS (10)
  - Umbilical discharge [Unknown]
  - Throat tightness [Unknown]
  - Otorrhoea [Unknown]
  - Alopecia [Unknown]
  - Eye discharge [Unknown]
  - Inappropriate schedule of drug administration [Unknown]
  - Swelling face [Unknown]
  - Nail disorder [Unknown]
  - Wrong patient received medication [Unknown]
  - Ear swelling [Unknown]

NARRATIVE: CASE EVENT DATE: 201409
